FAERS Safety Report 9879552 (Version 3)
Quarter: 2014Q1

REPORT INFORMATION
  Report Type: Spontaneous
  Country: US (occurrence: US)
  Receive Date: 20140206
  Receipt Date: 20140219
  Transmission Date: 20141002
  Serious: Yes (Other)
  Sender: FDA-Public Use
  Company Number: US-PFIZER INC-2014030496

PATIENT
  Age: 86 Year
  Sex: Male
  Weight: 82 kg

DRUGS (4)
  1. XALATAN [Suspect]
     Indication: GLAUCOMA
     Dosage: 1 GTT (IN EACH EYE), 1X/DAY
     Route: 047
  2. PROTONIX [Suspect]
     Indication: PROPHYLAXIS
     Dosage: UNK, 1X/DAY
     Dates: start: 2011
  3. VIAGRA [Suspect]
     Indication: ERECTILE DYSFUNCTION
     Dosage: UNK, AS NEEDED
     Dates: start: 2012
  4. EFFEXOR XR [Suspect]
     Indication: DEPRESSION
     Dosage: 75 MG, 3X/DAY

REACTIONS (3)
  - Blindness [Recovering/Resolving]
  - Intraocular pressure increased [Recovered/Resolved]
  - Vision blurred [Recovering/Resolving]
